FAERS Safety Report 18120964 (Version 2)
Quarter: 2025Q3

REPORT INFORMATION
  Report Type: Spontaneous
  Country: EU (occurrence: EU)
  Receive Date: 20200807
  Receipt Date: 20250705
  Transmission Date: 20251020
  Serious: Yes (Other)
  Sender: AUROBINDO
  Company Number: EU-002147023-NVSC2019FR058891

PATIENT
  Age: 79 Year
  Sex: Female

DRUGS (14)
  1. ABACAVIR SULFATE\LAMIVUDINE [Interacting]
     Active Substance: ABACAVIR SULFATE\LAMIVUDINE
     Indication: HIV infection
     Route: 065
  2. CLOPIDOGREL [Interacting]
     Active Substance: CLOPIDOGREL BISULFATE
     Indication: Pulmonary embolism
     Route: 065
  3. CLOPIDOGREL [Interacting]
     Active Substance: CLOPIDOGREL BISULFATE
     Indication: Acute coronary syndrome
  4. CLOPIDOGREL [Interacting]
     Active Substance: CLOPIDOGREL BISULFATE
     Indication: Arterial thrombosis
  5. CLOPIDOGREL [Interacting]
     Active Substance: CLOPIDOGREL BISULFATE
     Indication: Prophylaxis
  6. SIMVASTATIN [Interacting]
     Active Substance: SIMVASTATIN
     Indication: Pulmonary embolism
     Route: 065
  7. SIMVASTATIN [Interacting]
     Active Substance: SIMVASTATIN
     Indication: Acute coronary syndrome
  8. SIMVASTATIN [Interacting]
     Active Substance: SIMVASTATIN
     Indication: Arterial thrombosis
  9. SIMVASTATIN [Interacting]
     Active Substance: SIMVASTATIN
     Indication: Prophylaxis
  10. WARFARIN [Interacting]
     Active Substance: WARFARIN
     Indication: Acute coronary syndrome
     Route: 065
  11. WARFARIN [Interacting]
     Active Substance: WARFARIN
     Indication: Pulmonary embolism
  12. WARFARIN [Interacting]
     Active Substance: WARFARIN
     Indication: Arterial thrombosis
  13. WARFARIN [Interacting]
     Active Substance: WARFARIN
     Indication: Prophylaxis
  14. RILPIVIRINE [Interacting]
     Active Substance: RILPIVIRINE
     Indication: HIV infection
     Route: 065

REACTIONS (2)
  - Virologic failure [Unknown]
  - Drug interaction [Unknown]
